FAERS Safety Report 4474840-7 (Version None)
Quarter: 2004Q4

REPORT INFORMATION
  Report Type: 
  Country: None (occurrence: None)
  Receive Date: 20041012
  Receipt Date: 20040923
  Transmission Date: 20050328
  Serious: Yes (Hospitalization)
  Sender: FDA-Public Use
  Company Number: 239491

PATIENT
  Age: 45 Year
  Sex: Female
  Weight: 47 kg

DRUGS (8)
  1. NOVOLIN 30R PENFILL (INSULIN HUMAN) SUSPENSION FOR INJECTION, 100IU/ML [Suspect]
     Indication: DIABETES MELLITUS INSULIN-DEPENDENT
     Dosage: 34 IU, QD,
     Dates: start: 20040701
  2. ASPIRIN [Concomitant]
  3. VITAMIN B1 TAB [Concomitant]
  4. MERISLON (BETAHISTINE HYDROCHLORIDE) [Concomitant]
  5. METHYCOBAL (MECOBALAMIN) [Concomitant]
  6. ALPRAZOLAM [Concomitant]
  7. SOMAZINA (CITICOLINE) [Concomitant]
  8. METFORMIN HCL [Concomitant]

REACTIONS (2)
  - HYPOGLYCAEMIA [None]
  - TRANSIENT ISCHAEMIC ATTACK [None]
